FAERS Safety Report 10588853 (Version 2)
Quarter: 2015Q3

REPORT INFORMATION
  Report Type: Spontaneous
  Country: US (occurrence: US)
  Receive Date: 20141117
  Receipt Date: 20150818
  Transmission Date: 20151125
  Serious: No
  Sender: FDA-Public Use
  Company Number: US-GILEAD-2014-0122344

PATIENT
  Age: 75 Year
  Sex: Female

DRUGS (13)
  1. GENTLE IRON [Concomitant]
  2. LYRICA [Concomitant]
     Active Substance: PREGABALIN
  3. COREG [Concomitant]
     Active Substance: CARVEDILOL
  4. LETAIRIS [Suspect]
     Active Substance: AMBRISENTAN
     Indication: PULMONARY HYPERTENSION
     Dosage: 10 MG, QD
     Route: 065
     Dates: start: 20121115, end: 20141013
  5. ADCIRCA [Suspect]
     Active Substance: TADALAFIL
     Indication: PULMONARY HYPERTENSION
     Dates: start: 20140510, end: 20141013
  6. VITAMIN B12 [Concomitant]
     Active Substance: CYANOCOBALAMIN
  7. CALCIUM W/VITAMIN D NOS [Concomitant]
     Active Substance: CALCIUM\VITAMIN D
  8. LETAIRIS [Suspect]
     Active Substance: AMBRISENTAN
     Indication: SYSTEMIC SCLEROSIS
  9. COENZYME Q10 [Concomitant]
     Active Substance: UBIDECARENONE
  10. TRILIPIX [Concomitant]
     Active Substance: FENOFIBRIC ACID
  11. PANTOPRAZOLE [Concomitant]
     Active Substance: PANTOPRAZOLE SODIUM
  12. PAXIL [Concomitant]
     Active Substance: PAROXETINE HYDROCHLORIDE
  13. LOSARTAN. [Concomitant]
     Active Substance: LOSARTAN

REACTIONS (4)
  - Visual impairment [Unknown]
  - Anaemia [Unknown]
  - Drug ineffective [Unknown]
  - No therapeutic response [Unknown]
